FAERS Safety Report 8210705-2 (Version None)
Quarter: 2012Q1

REPORT INFORMATION
  Report Type: 
  Country: None (occurrence: None)
  Receive Date: 20120315
  Receipt Date: 20120306
  Transmission Date: 20120608
  Serious: Yes (Life-Threatening, Hospitalization)
  Sender: FDA-Public Use
  Company Number: DE-BRISTOL-MYERS SQUIBB COMPANY-16446056

PATIENT
  Age: 52 Year
  Sex: Female
  Weight: 58 kg

DRUGS (6)
  1. MORPHINE [Concomitant]
     Indication: NON-SMALL CELL LUNG CANCER
     Route: 048
     Dates: start: 20090915
  2. GEMCITABINE [Suspect]
     Indication: NON-SMALL CELL LUNG CANCER
     Dosage: ON DAY 1,8 OF 21DAY CYCLE 4TH INF ON 16DEC09
     Route: 042
     Dates: start: 20091117
  3. CETUXIMAB [Suspect]
     Indication: NON-SMALL CELL LUNG CANCER
     Dosage: PRODUCT STRENGTH IS 5MG/ML 6TH INF ON 23DEC09
     Route: 042
     Dates: start: 20091117
  4. CARBOPLATIN [Suspect]
     Indication: NON-SMALL CELL LUNG CANCER
     Dosage: ON DAY 1 OF 21DY CYCLE 2ND INFU ON 9DEC09
     Route: 042
     Dates: start: 20091117
  5. NOVALGIN [Concomitant]
     Indication: NON-SMALL CELL LUNG CANCER
     Route: 048
     Dates: start: 20090915
  6. TETRAZEPAM [Concomitant]
     Route: 048
     Dates: start: 20091109, end: 20100219

REACTIONS (1)
  - PULMONARY EMBOLISM [None]
